FAERS Safety Report 7774542-5 (Version None)
Quarter: 2011Q3

REPORT INFORMATION
  Report Type: 
  Country: None (occurrence: None)
  Receive Date: 20110923
  Receipt Date: 20110923
  Transmission Date: 20111222
  Serious: Yes (Other)
  Sender: FDA-Public Use
  Company Number: None

PATIENT
  Sex: Male
  Weight: 13.154 kg

DRUGS (1)
  1. TEETHING TABLETS  (OTC) [Suspect]

REACTIONS (5)
  - LETHARGY [None]
  - HYPERSOMNIA [None]
  - CONVULSION [None]
  - HYPOPNOEA [None]
  - LIP DISCOLOURATION [None]
